FAERS Safety Report 9722989 (Version 1)
Quarter: 2013Q4

REPORT INFORMATION
  Report Type: Spontaneous
  Country: US (occurrence: None)
  Receive Date: 20131127
  Receipt Date: 20131127
  Transmission Date: 20140711
  Serious: Yes (Hospitalization)
  Sender: FDA-Public Use
  Company Number: None

PATIENT
  Age: 64 Year
  Sex: Male
  Weight: 98.1 kg

DRUGS (3)
  1. RIFAMPIN 300MG LANNETT [Suspect]
     Indication: STAPHYLOCOCCAL SKIN INFECTION
     Dosage: 600MG, BID, ORAL
     Route: 048
  2. OXACILLIN [Suspect]
     Indication: STAPHYLOCOCCAL SKIN INFECTION
     Dosage: 22, EVERY 4 HOURS, INTRAVENOUS
     Route: 042
  3. OXACILLIN AND RIFAMPIN FOR MSSA FOR 23 DAYS.? [Concomitant]

REACTIONS (2)
  - Pancytopenia [None]
  - Pyrexia [None]
